FAERS Safety Report 13390913 (Version 1)
Quarter: 2017Q1

REPORT INFORMATION
  Report Type: Spontaneous
  Country: US (occurrence: US)
  Receive Date: 20170331
  Receipt Date: 20170331
  Transmission Date: 20170429
  Serious: No
  Sender: FDA-Public Use
  Company Number: None

PATIENT
  Age: 13 Year
  Sex: Female
  Weight: 67.5 kg

DRUGS (2)
  1. QVAIR [Concomitant]
  2. MONTELUKAST [Suspect]
     Active Substance: MONTELUKAST SODIUM
     Indication: MULTIPLE ALLERGIES
     Dates: start: 20140301, end: 20170203

REACTIONS (3)
  - Psychomotor hyperactivity [None]
  - Anger [None]
  - Agitation [None]

NARRATIVE: CASE EVENT DATE: 20160801
